FAERS Safety Report 8450502-6 (Version None)
Quarter: 2012Q2

REPORT INFORMATION
  Report Type: 
  Country: None (occurrence: None)
  Receive Date: 20120620
  Receipt Date: 20120618
  Transmission Date: 20120825
  Serious: Yes (Hospitalization)
  Sender: FDA-Public Use
  Company Number: IT-BRISTOL-MYERS SQUIBB COMPANY-16649576

PATIENT
  Age: 44 Year
  Sex: Male

DRUGS (2)
  1. COUMADIN [Suspect]
     Indication: MYOCARDIAL INFARCTION
     Dates: start: 20020101, end: 20120313
  2. LOPRESSOR [Concomitant]

REACTIONS (3)
  - RECTAL HAEMORRHAGE [None]
  - ANAEMIA [None]
  - HAEMATURIA [None]
